FAERS Safety Report 9205428 (Version 1)
Quarter: 2013Q2

REPORT INFORMATION
  Report Type: Spontaneous
  Country: ES (occurrence: ES)
  Receive Date: 20130403
  Receipt Date: 20130403
  Transmission Date: 20140414
  Serious: Yes (Hospitalization)
  Sender: FDA-Public Use
  Company Number: ES-ABBOTT-13X-144-1071286-00

PATIENT
  Age: 53 Year
  Sex: Female

DRUGS (7)
  1. DEPAKINE [Suspect]
     Indication: SCHIZOAFFECTIVE DISORDER BIPOLAR TYPE
     Route: 048
     Dates: start: 2009, end: 20120921
  2. SEGURIL [Interacting]
     Indication: CARDIAC FAILURE CONGESTIVE
     Route: 048
     Dates: start: 201207, end: 20120921
  3. ZYPREXA [Interacting]
     Indication: SCHIZOPHRENIA
     Route: 048
     Dates: start: 2009, end: 20120921
  4. GLUCOPHAGE [Concomitant]
     Indication: PRODUCT USED FOR UNKNOWN INDICATION
     Dates: start: 2009
  5. CLOPIDOGREL [Concomitant]
     Indication: PRODUCT USED FOR UNKNOWN INDICATION
     Dates: start: 2009
  6. URBASON [Concomitant]
     Indication: PRODUCT USED FOR UNKNOWN INDICATION
     Dates: start: 20120918
  7. LEVOFLOXACIN [Concomitant]
     Indication: PRODUCT USED FOR UNKNOWN INDICATION
     Dates: start: 20120918

REACTIONS (3)
  - Drug interaction [Unknown]
  - Inappropriate antidiuretic hormone secretion [Recovered/Resolved]
  - Encephalopathy [Recovered/Resolved]
